FAERS Safety Report 5777708-9 (Version None)
Quarter: 2008Q2

REPORT INFORMATION
  Report Type: 
  Country: None (occurrence: None)
  Receive Date: 20080618
  Receipt Date: 20080616
  Transmission Date: 20081010
  Serious: Yes (Hospitalization)
  Sender: FDA-Public Use
  Company Number: CL-BOEHRINGER INGELHEIM GMBH, GERMANY-2008-BP-09351RO

PATIENT
  Age: 27 Year
  Sex: Female
  Weight: 65 kg

DRUGS (8)
  1. FUROSEMIDE [Suspect]
     Indication: EYELID OEDEMA
  2. FUROSEMIDE [Suspect]
     Indication: OEDEMA PERIPHERAL
  3. SALINE WITH KCL AND MAGNESIUM SULPHATE [Concomitant]
     Indication: ELECTROCARDIOGRAM ABNORMAL
     Route: 042
  4. SALINE WITH KCL AND MAGNESIUM SULPHATE [Concomitant]
     Indication: HYPOVOLAEMIA
  5. POTASSIUM CHLORIDE [Concomitant]
     Indication: ELECTROCARDIOGRAM ABNORMAL
     Route: 048
  6. POTASSIUM CHLORIDE [Concomitant]
     Indication: HYPOKALAEMIA
     Route: 048
  7. MAGNESIUM [Concomitant]
     Route: 048
  8. PAROXETINE HCL [Concomitant]
     Indication: AFFECTIVE DISORDER

REACTIONS (7)
  - CONSTIPATION [None]
  - DRUG ABUSE [None]
  - ELECTROCARDIOGRAM ABNORMAL [None]
  - HYPOKALAEMIA [None]
  - HYPOVOLAEMIA [None]
  - METABOLIC ALKALOSIS [None]
  - PARESIS [None]
